FAERS Safety Report 5866282-4 (Version None)
Quarter: 2008Q3

REPORT INFORMATION
  Report Type: 
  Country: None (occurrence: None)
  Receive Date: 20080829
  Receipt Date: 20080107
  Transmission Date: 20090109
  Serious: Yes (Hospitalization)
  Sender: FDA-Public Use
  Company Number: GB-PFIZER INC-2008002324

PATIENT
  Age: 28 Year
  Sex: Female

DRUGS (2)
  1. TRANEXAMIC ACID (IV) [Suspect]
     Indication: PLATELET DISORDER
     Route: 048
  2. DDAVP [Suspect]
     Indication: EPISTAXIS
     Route: 042

REACTIONS (2)
  - CHEST PAIN [None]
  - MYOCARDIAL INFARCTION [None]
